FAERS Safety Report 9103950 (Version 1)
Quarter: 2013Q1

REPORT INFORMATION
  Report Type: Spontaneous
  Country: US (occurrence: US)
  Receive Date: 20130219
  Receipt Date: 20130219
  Transmission Date: 20140127
  Serious: Yes (Other)
  Sender: FDA-Public Use
  Company Number: US-BAYER-2013-018918

PATIENT
  Sex: Female

DRUGS (1)
  1. MIRENA [Suspect]
     Dosage: 20 MCG/24HR, CONT
     Route: 015
     Dates: start: 20080115, end: 20110915

REACTIONS (8)
  - Uterine perforation [None]
  - Injury [None]
  - Emotional distress [None]
  - Abdominal discomfort [None]
  - Abdominal pain lower [None]
  - Menorrhagia [None]
  - Dysmenorrhoea [None]
  - Anxiety [None]
